FAERS Safety Report 7951320-5 (Version None)
Quarter: 2011Q4

REPORT INFORMATION
  Report Type: 
  Country: None (occurrence: None)
  Receive Date: 20111201
  Receipt Date: 20111118
  Transmission Date: 20120403
  Serious: Yes (Other)
  Sender: FDA-Public Use
  Company Number: PA-ASTELLAS-2011US007634

PATIENT
  Age: 64 Year
  Sex: Female

DRUGS (1)
  1. LEXISCAN [Suspect]
     Indication: PRODUCT USED FOR UNKNOWN INDICATION
     Dosage: 0.4 MG/5 ML TOTAL DOSE
     Route: 042
     Dates: start: 20110928, end: 20110928

REACTIONS (4)
  - ATRIAL FLUTTER [None]
  - SENSATION OF PRESSURE [None]
  - HEART RATE INCREASED [None]
  - CHEST PAIN [None]
